FAERS Safety Report 16783176 (Version 1)
Quarter: 2019Q3

REPORT INFORMATION
  Report Type: Spontaneous
  Country: DE (occurrence: DE)
  Receive Date: 20190907
  Receipt Date: 20190907
  Transmission Date: 20191005
  Serious: Yes (Hospitalization, Other)
  Sender: FDA-Public Use
  Company Number: DE-009507513-1909DEU000633

PATIENT

DRUGS (15)
  1. CANDESARTAN. [Interacting]
     Active Substance: CANDESARTAN
     Indication: PRODUCT USED FOR UNKNOWN INDICATION
     Dosage: 1 (UNITS NOT PROVIDED),UNK, ONCE A DAY
     Route: 048
  2. BERODUAL [Interacting]
     Active Substance: FENOTEROL HYDROBROMIDE\IPRATROPIUM BROMIDE
     Indication: PRODUCT USED FOR UNKNOWN INDICATION
     Dosage: UNK UNK, AS NECESSARY
  3. AMLODIPINE [Interacting]
     Active Substance: AMLODIPINE BESYLATE
     Indication: PRODUCT USED FOR UNKNOWN INDICATION
     Dosage: UNK, TWO TIMES A DAY
     Route: 048
     Dates: start: 20190720
  4. ALENDRONIC ACID [Suspect]
     Active Substance: ALENDRONIC ACID
     Indication: PRODUCT USED FOR UNKNOWN INDICATION
     Dosage: UNK, BEGINNING OF 2017 (STATED AS SINCE 2.5 YEARS)
     Route: 048
     Dates: start: 2017
  5. MOVICOL [Concomitant]
     Active Substance: POLYETHYLENE GLYCOL 3350\POTASSIUM CHLORIDE\SODIUM BICARBONATE\SODIUM CHLORIDE
     Indication: PRODUCT USED FOR UNKNOWN INDICATION
     Dosage: UNK
  6. ACE (METHSCOPOLAMINE BROMIDE) [Interacting]
     Active Substance: METHSCOPOLAMINE BROMIDE
     Indication: PRODUCT USED FOR UNKNOWN INDICATION
     Dosage: 1 (UNITS NOT PROVIDED), ONCE A DAY
     Route: 048
     Dates: start: 20190720
  7. CHOLECALCIFEROL [Interacting]
     Active Substance: CHOLECALCIFEROL
     Indication: PRODUCT USED FOR UNKNOWN INDICATION
     Dosage: 1 (UNITS NOT PROVIDED), UNK, EVERY WEEK
     Route: 048
  8. SPIRIVA RESPIMAT [Interacting]
     Active Substance: TIOTROPIUM BROMIDE
     Indication: PRODUCT USED FOR UNKNOWN INDICATION
     Dosage: UNK, TWO TIMES A DAY
  9. ROFLUMILAST. [Interacting]
     Active Substance: ROFLUMILAST
     Indication: PRODUCT USED FOR UNKNOWN INDICATION
     Dosage: UNK, ONCE A DAY
     Route: 048
  10. ASPIRIN. [Interacting]
     Active Substance: ASPIRIN
     Indication: PRODUCT USED FOR UNKNOWN INDICATION
     Dosage: 1 (UNITS NOT PROVIDED), UNK UNK, ONCE A DAY
     Route: 048
  11. MORPHINE [Concomitant]
     Active Substance: MORPHINE
     Indication: PRODUCT USED FOR UNKNOWN INDICATION
     Dosage: 2 (UNITS NOT PROVIDED),UNK, TWO TIMES A DAY
     Route: 065
  12. FOSTER (PIROXICAM) [Concomitant]
     Active Substance: PIROXICAM
     Indication: PRODUCT USED FOR UNKNOWN INDICATION
     Dosage: 2 (UNITS NOT PROVIDED), UNK, TWO TIMES A DAY
     Route: 065
  13. SIMVASTATIN. [Suspect]
     Active Substance: SIMVASTATIN
     Indication: DYSLIPIDAEMIA
     Dosage: UNK, ONCE A DAY
     Route: 048
  14. DIPYRONE [Interacting]
     Active Substance: DIPYRONE
     Indication: PRODUCT USED FOR UNKNOWN INDICATION
     Dosage: UNK, 1/2-0-1/2-0
     Route: 048
  15. SPIRIVA [Concomitant]
     Active Substance: TIOTROPIUM BROMIDE MONOHYDRATE
     Indication: PRODUCT USED FOR UNKNOWN INDICATION
     Dosage: 36 MICROGRAM, ONCE A DAY

REACTIONS (4)
  - Cerebrovascular accident [Recovered/Resolved]
  - Off label use [Not Recovered/Not Resolved]
  - Dizziness [Unknown]
  - Nausea [Unknown]

NARRATIVE: CASE EVENT DATE: 2017
